FAERS Safety Report 12441712 (Version 3)
Quarter: 2019Q1

REPORT INFORMATION
  Report Type: Spontaneous
  Country: US (occurrence: US)
  Receive Date: 20160607
  Receipt Date: 20190130
  Transmission Date: 20190417
  Serious: Yes (Other)
  Sender: FDA-Public Use
  Company Number: US-DSJP-DSU-2015-133820

PATIENT

DRUGS (4)
  1. BENICAR [Suspect]
     Active Substance: OLMESARTAN MEDOXOMIL
     Dosage: 40 MG, QD
  2. BENICAR [Suspect]
     Active Substance: OLMESARTAN MEDOXOMIL
     Dosage: 40MG 1/2, QD
  3. ATACAND [Concomitant]
     Active Substance: CANDESARTAN CILEXETIL
     Indication: PRODUCT USED FOR UNKNOWN INDICATION
     Dosage: 16/12.5 MG, QD
     Dates: start: 2003, end: 2005
  4. BENICAR [Suspect]
     Active Substance: OLMESARTAN MEDOXOMIL
     Indication: HYPERTENSION
     Dosage: 20 MG, QD
     Dates: start: 20050101, end: 200810

REACTIONS (18)
  - Haemorrhoids [Unknown]
  - Irritable bowel syndrome [Unknown]
  - Haematochezia [Recovered/Resolved]
  - Sprue-like enteropathy [Recovering/Resolving]
  - Gastrooesophageal reflux disease [Unknown]
  - Large intestine polyp [Recovered/Resolved]
  - Rash [Recovered/Resolved]
  - Coeliac disease [Not Recovered/Not Resolved]
  - Anal incontinence [Recovered/Resolved]
  - Umbilical hernia [Unknown]
  - Ectopic gastric mucosa [Unknown]
  - Product administration error [Unknown]
  - Ulcer [Unknown]
  - Lymphadenitis [Unknown]
  - Liver function test increased [Unknown]
  - Acute kidney injury [Unknown]
  - Nephrolithiasis [Unknown]
  - Diverticulum intestinal [Unknown]

NARRATIVE: CASE EVENT DATE: 2005
